FAERS Safety Report 5622300-X (Version None)
Quarter: 2008Q1

REPORT INFORMATION
  Report Type: 
  Country: None (occurrence: None)
  Receive Date: 20080211
  Receipt Date: 20080204
  Transmission Date: 20080703
  Serious: Yes (Other)
  Sender: FDA-Public Use
  Company Number: US-ASTRAZENECA-2008UW02394

PATIENT
  Sex: Female

DRUGS (2)
  1. ARIMIDEX [Suspect]
     Indication: BREAST CANCER
     Route: 048
     Dates: start: 20050101
  2. LOVITA LOTION [Concomitant]

REACTIONS (4)
  - ARTHRALGIA [None]
  - CARTILAGE NEOPLASM [None]
  - CONSTIPATION [None]
  - SKIN DISORDER [None]
